FAERS Safety Report 9509775 (Version 1)
Quarter: 2013Q3

REPORT INFORMATION
  Report Type: Spontaneous
  Country: US (occurrence: US)
  Receive Date: 20130909
  Receipt Date: 20130909
  Transmission Date: 20140515
  Serious: No
  Sender: FDA-Public Use
  Company Number: US-BRISTOL-MYERS SQUIBB COMPANY-18856567

PATIENT
  Age: 50 Year
  Sex: Female
  Weight: 58.96 kg

DRUGS (2)
  1. ABILIFY [Suspect]
     Dates: start: 20130409
  2. ATIVAN [Concomitant]

REACTIONS (4)
  - Depression [Unknown]
  - Anxiety [Unknown]
  - Asthenia [Unknown]
  - Hypoaesthesia [Unknown]
